FAERS Safety Report 7351341-X (Version None)
Quarter: 2011Q1

REPORT INFORMATION
  Report Type: 
  Country: None (occurrence: None)
  Receive Date: 20110314
  Receipt Date: 20110301
  Transmission Date: 20110831
  Serious: Yes (Hospitalization, Disabling, Other)
  Sender: FDA-Public Use
  Company Number: PHHY2010BR62280

PATIENT
  Sex: Female

DRUGS (3)
  1. CITALEC [Concomitant]
     Indication: DEPRESSION
     Dosage: 1 TABLET PER DAY
     Route: 048
  2. EXELON [Suspect]
     Indication: DEMENTIA ALZHEIMER'S TYPE
     Dosage: 2.5 MG, BID (2 MG, 120 ML)
     Route: 048
     Dates: start: 20050101
  3. RIVOTRIL [Concomitant]
     Indication: SLEEP DISORDER
     Dosage: 1 TABLET PER DAY
     Route: 048

REACTIONS (4)
  - FEMUR FRACTURE [None]
  - BEDRIDDEN [None]
  - FALL [None]
  - VOMITING [None]
